FAERS Safety Report 9553075 (Version 2)
Quarter: 2013Q3

REPORT INFORMATION
  Report Type: Spontaneous
  Country: FR (occurrence: FR)
  Receive Date: 20130925
  Receipt Date: 20130930
  Transmission Date: 20140515
  Serious: Yes (Other)
  Sender: FDA-Public Use
  Company Number: FR-PFIZER INC-2013269025

PATIENT
  Sex: Female

DRUGS (5)
  1. CORDARONE [Suspect]
     Dosage: 200 MG, 1X/DAY
     Route: 048
  2. ATENOLOL [Suspect]
     Dosage: 100 MG, 1X/DAY
     Route: 048
  3. KARDEGIC [Concomitant]
     Dosage: 75 MG, UNK
     Route: 065
  4. ZOCOR [Concomitant]
     Dosage: 40 MG, UNK
     Route: 065
  5. ALDACTAZINE [Concomitant]
     Dosage: UNK
     Route: 065

REACTIONS (2)
  - Drug dose omission [Unknown]
  - Malaise [Unknown]
